FAERS Safety Report 7722949-4 (Version None)
Quarter: 2011Q3

REPORT INFORMATION
  Report Type: 
  Country: None (occurrence: None)
  Receive Date: 20110825
  Receipt Date: 20110818
  Transmission Date: 20111222
  Serious: Yes (Life-Threatening, Hospitalization)
  Sender: FDA-Public Use
  Company Number: 159848776

PATIENT
  Age: 89 Year
  Sex: Female

DRUGS (10)
  1. DIGOXIN [Concomitant]
  2. PROZAC [Concomitant]
  3. OXAZEPAM [Concomitant]
  4. COUMADIN [Suspect]
  5. NICARDIPINE HYDROCHLORIDE [Concomitant]
  6. ATARAX (DYDROXYZINE HCL) [Concomitant]
  7. SOPROL (BISOPROLOL HEMIFLUMARATE) [Concomitant]
  8. HYPERIUM (RILMENIDINE) [Concomitant]
  9. ALLOPURINOL [Concomitant]
  10. MOTILYO (DOMPERIDONE) [Concomitant]

REACTIONS (4)
  - HAEMATOMA [None]
  - HAEMOGLOBIN DECREASED [None]
  - FALL [None]
  - RIB FRACTURE [None]
